FAERS Safety Report 8056263-7 (Version None)
Quarter: 2011Q4

REPORT INFORMATION
  Report Type: 
  Country: None (occurrence: None)
  Receive Date: 20111220
  Receipt Date: 20110817
  Transmission Date: 20120403
  Serious: Yes (Hospitalization)
  Sender: FDA-Public Use
  Company Number: PHEH2011US01799

PATIENT
  Age: 54 Year
  Sex: Male

DRUGS (1)
  1. MYFORTIC [Suspect]
     Indication: RENAL TRANSPLANT
     Dosage: 180 MG, BID, ORAL
     Route: 048
     Dates: start: 20110411

REACTIONS (1)
  - PNEUMONIA [None]
